FAERS Safety Report 6320490-7 (Version None)
Quarter: 2009Q3

REPORT INFORMATION
  Report Type: 
  Country: None (occurrence: None)
  Receive Date: 20090822
  Receipt Date: 20081111
  Transmission Date: 20100115
  Serious: No
  Sender: FDA-Public Use
  Company Number: US-ABBOTT-08P-163-0487013-00

PATIENT
  Sex: Female
  Weight: 113.5 kg

DRUGS (9)
  1. NIASPAN [Suspect]
     Indication: CARDIAC DISORDER
     Route: 048
     Dates: start: 20080901
  2. CARVEDILOL [Concomitant]
     Indication: CARDIAC DISORDER
  3. ESOMEPRAZOLE MAGNESIUM [Concomitant]
     Indication: GASTROOESOPHAGEAL REFLUX DISEASE
  4. AMLODIPINE BESYLATE AND BENAZEPRIL HCL [Concomitant]
     Indication: CARDIAC DISORDER
  5. ALLOPURINOL [Concomitant]
     Indication: GOUT
  6. FUROSEMIDE [Concomitant]
     Indication: OEDEMA
  7. POTASSIUM CHLORIDE [Concomitant]
     Indication: ELECTROLYTE SUBSTITUTION THERAPY
  8. CRANBERRY PILL [Concomitant]
     Indication: ROUTINE HEALTH MAINTENANCE
  9. DOCUSATE SODIUM [Concomitant]
     Indication: CONSTIPATION

REACTIONS (4)
  - ERYTHEMA [None]
  - FLUSHING [None]
  - PARAESTHESIA [None]
  - PRURITUS [None]
